FAERS Safety Report 18700763 (Version 1)
Quarter: 2021Q1

REPORT INFORMATION
  Report Type: Spontaneous
  Country: US (occurrence: US)
  Receive Date: 20210105
  Receipt Date: 20210105
  Transmission Date: 20210419
  Serious: Yes (Other)
  Sender: FDA-Public Use
  Company Number: US-SA-2021SA001983

PATIENT

DRUGS (1)
  1. DUPIXENT [Suspect]
     Active Substance: DUPILUMAB
     Indication: DERMATITIS ATOPIC

REACTIONS (8)
  - Cataract [Unknown]
  - Transplant [Unknown]
  - Eye pruritus [Unknown]
  - Lacrimation increased [Unknown]
  - Treatment failure [Unknown]
  - Blood blister [Unknown]
  - Dermatitis atopic [Unknown]
  - Corneal disorder [Unknown]

NARRATIVE: CASE EVENT DATE: 20180817
